FAERS Safety Report 25700785 (Version 1)
Quarter: 2025Q3

REPORT INFORMATION
  Report Type: Spontaneous
  Country: US (occurrence: US)
  Receive Date: 20250819
  Receipt Date: 20250819
  Transmission Date: 20251020
  Serious: Yes (Hospitalization)
  Sender: LEADING PHARMA
  Company Number: US-LEADINGPHARMA-US-2025LEALIT00144

PATIENT
  Age: 26 Year
  Sex: Female

DRUGS (2)
  1. LIDOCAINE [Suspect]
     Active Substance: LIDOCAINE
     Indication: Pharyngitis
     Route: 061
  2. BENZOCAIN [Suspect]
     Active Substance: BENZOCAINE
     Indication: Pharyngitis
     Route: 061

REACTIONS (3)
  - Methaemoglobinaemia [Recovering/Resolving]
  - Product use in unapproved indication [Unknown]
  - Exposure during pregnancy [Unknown]
